FAERS Safety Report 24791757 (Version 2)
Quarter: 2025Q1

REPORT INFORMATION
  Report Type: Spontaneous
  Country: US (occurrence: US)
  Receive Date: 20241231
  Receipt Date: 20250210
  Transmission Date: 20250409
  Serious: No
  Sender: Unknown Manufacturer
  Company Number: US-862174955-ML2024-06746

PATIENT
  Age: 67 Year
  Sex: Male
  Weight: 77 kg

DRUGS (1)
  1. DORZOLAMIDE HYDROCHLORIDE AND TIMOLOL MALEATE OPHTHALMIC SOLUTION [Suspect]
     Active Substance: DORZOLAMIDE HYDROCHLORIDE\TIMOLOL MALEATE
     Indication: Glaucoma
     Dosage: DOSAGE: ONE DROP IN EACH EYE
     Route: 047
     Dates: start: 20241016

REACTIONS (7)
  - Condition aggravated [Unknown]
  - Periorbital inflammation [Not Recovered/Not Resolved]
  - Pruritus [Not Recovered/Not Resolved]
  - Erythema [Not Recovered/Not Resolved]
  - Dry skin [Not Recovered/Not Resolved]
  - Skin burning sensation [Not Recovered/Not Resolved]
  - Product quality issue [Unknown]

NARRATIVE: CASE EVENT DATE: 20240101
